FAERS Safety Report 10784045 (Version 1)
Quarter: 2015Q1

REPORT INFORMATION
  Report Type: Spontaneous
  Country: GB (occurrence: GB)
  Receive Date: 20150211
  Receipt Date: 20150211
  Transmission Date: 20150721
  Serious: Yes (Death, Other)
  Sender: FDA-Public Use
  Company Number: GB-ROCHE-1535187

PATIENT
  Age: 75 Year
  Sex: Female

DRUGS (1)
  1. NAPROXEN. [Suspect]
     Active Substance: NAPROXEN
     Indication: PRODUCT USED FOR UNKNOWN INDICATION
     Route: 048

REACTIONS (5)
  - Pulmonary fibrosis [Fatal]
  - Bronchiectasis [Fatal]
  - Dyspnoea [Not Recovered/Not Resolved]
  - Product packaging confusion [Unknown]
  - Drug dispensing error [Unknown]
